FAERS Safety Report 11264231 (Version 1)
Quarter: 2015Q3

REPORT INFORMATION
  Report Type: Spontaneous
  Country: US (occurrence: US)
  Receive Date: 20150713
  Receipt Date: 20150713
  Transmission Date: 20151125
  Serious: No
  Sender: FDA-Public Use
  Company Number: US-JNJFOC-20150611971

PATIENT
  Sex: Male
  Weight: 83.92 kg

DRUGS (4)
  1. EMTRIVA [Concomitant]
     Active Substance: EMTRICITABINE
     Route: 065
  2. PRAVASTATIN [Concomitant]
     Active Substance: PRAVASTATIN\PRAVASTATIN SODIUM
     Indication: BLOOD CHOLESTEROL INCREASED
     Route: 065
  3. HYDROCHLOORTHIAZIDE [Concomitant]
     Active Substance: HYDROCHLOROTHIAZIDE
     Indication: HYPERTENSION
     Route: 065
  4. EDURANT [Suspect]
     Active Substance: RILPIVIRINE HYDROCHLORIDE
     Indication: PRODUCT USED FOR UNKNOWN INDICATION
     Route: 048
     Dates: start: 2015

REACTIONS (3)
  - Therapy naive [Not Recovered/Not Resolved]
  - Insomnia [Not Recovered/Not Resolved]
  - Pain [Not Recovered/Not Resolved]

NARRATIVE: CASE EVENT DATE: 2015
